FAERS Safety Report 6339989-2 (Version None)
Quarter: 2009Q3

REPORT INFORMATION
  Report Type: 
  Country: None (occurrence: None)
  Receive Date: 20090903
  Receipt Date: 20090825
  Transmission Date: 20100115
  Serious: Yes (Hospitalization)
  Sender: FDA-Public Use
  Company Number: AT-GENENTECH-288637

PATIENT
  Sex: Male

DRUGS (4)
  1. AVASTIN [Suspect]
     Indication: COLORECTAL CANCER
     Dosage: 5 MG/KG, UNK
     Route: 065
     Dates: start: 20090608, end: 20090706
  2. FLUOROURACIL [Suspect]
     Indication: COLORECTAL CANCER
     Dosage: 180 MG/M2, UNK
     Route: 065
     Dates: start: 20090608, end: 20090706
  3. LEUCOVORIN CALCIUM [Suspect]
     Indication: COLORECTAL CANCER
     Dosage: 180 MG/M2, UNK
     Route: 065
     Dates: start: 20090608, end: 20090706
  4. IRINOTECAN HCL [Suspect]
     Indication: COLORECTAL CANCER
     Dosage: 180 MG/M2, UNK
     Route: 065
     Dates: start: 20090608, end: 20090706

REACTIONS (1)
  - ILEITIS [None]
